FAERS Safety Report 9562849 (Version 2)
Quarter: 2014Q1

REPORT INFORMATION
  Report Type: Report from Study
  Country: US (occurrence: US)
  Receive Date: 20130927
  Receipt Date: 20140106
  Transmission Date: 20141002
  Serious: Yes (Hospitalization, Other)
  Sender: FDA-Public Use
  Company Number: US-ALEXION PHARMACEUTICALS INC.-A201202638

PATIENT
  Age: 1 Year
  Sex: Female
  Weight: 12 kg

DRUGS (19)
  1. SOLIRIS [Suspect]
     Indication: HAEMOLYTIC URAEMIC SYNDROME
     Dosage: 600 MG, SINGLE
     Route: 042
     Dates: start: 20120411, end: 20120411
  2. SOLIRIS [Suspect]
     Indication: OFF LABEL USE
     Dosage: 300 MG, SINGLE
     Route: 042
     Dates: start: 20120418, end: 20120418
  3. SOLIRIS [Suspect]
     Dosage: 300 MG, SINGLE
     Route: 042
     Dates: start: 20120425, end: 20120425
  4. NEPHROVITE [Concomitant]
     Dosage: 0.6 MG, QD
     Route: 048
  5. CHOLECALCIFEROL [Concomitant]
     Dosage: 400 UNIT/ML, 5 ML QD
     Route: 051
  6. EPOETIN ALFA [Concomitant]
     Dosage: 10,000 UNIT/ML, 0.15 ML 2XWEEK
     Route: 058
  7. GLUCAGON [Concomitant]
     Indication: HYPOGLYCAEMIA
     Dosage: 0.5 MG, UNK
     Route: 030
  8. INSULIN GLARGINE [Concomitant]
     Indication: DIABETES MELLITUS
     Dosage: 100 UNIT/ML. 4.5 UNITS QD
     Route: 058
  9. LABETALOL [Concomitant]
     Dosage: 2 MG/ML, 2 ML BID
     Route: 048
  10. LORAZEPAM [Concomitant]
     Dosage: 2 MG/ML, 0.35 ML Q8H
     Route: 048
  11. LORAZEPAM [Concomitant]
     Dosage: 2 MG/ML, 0.3 ML Q8H
  12. OMEPRAZOLE [Concomitant]
     Dosage: 2 MG/ML. 6 ML QD
     Route: 048
  13. ONDANSETRON [Concomitant]
     Dosage: 4 MG/5ML, 2,5 ML TID
     Route: 048
  14. SIMETHICONE [Concomitant]
     Indication: ABDOMINAL DISTENSION
     Dosage: 40 MG/ML, 0.6 ML Q6H PRN
     Route: 048
  15. ASPIRIN [Concomitant]
     Dosage: 40.5 MG, QD
     Route: 048
  16. CALCITRIOL [Concomitant]
     Dosage: 1 MCG/ML, 0.25 ML QD
     Route: 051
  17. CLONIDINE [Concomitant]
     Indication: HYPERTENSION
     Dosage: 0.1 MG/ML, 0.4 ML PRN
     Route: 048
  18. INSULIN LISPRO [Concomitant]
     Indication: DIABETES MELLITUS
     Dosage: 100 UNIT/ML, 0.5-1 UNITS PRN
     Route: 058
  19. MAGNESIUM CARBONATE [Concomitant]
     Dosage: 54 MG/5 ML, 3 ML BID
     Route: 048

REACTIONS (10)
  - Ileal perforation [Recovered/Resolved]
  - Gastrointestinal necrosis [Recovered/Resolved]
  - Renal transplant [Unknown]
  - Hyperglycaemia [Recovered/Resolved]
  - Ascites [Unknown]
  - Peritonitis [Unknown]
  - Off label use [Recovered/Resolved]
  - Blood pressure abnormal [Recovered/Resolved]
  - Umbilical erythema [Unknown]
  - Infection [Unknown]
